FAERS Safety Report 10727300 (Version 1)
Quarter: 2015Q1

REPORT INFORMATION
  Report Type: Report from Study
  Country: CA (occurrence: CA)
  Receive Date: 20150121
  Receipt Date: 20150121
  Transmission Date: 20150721
  Serious: Yes (Other)
  Sender: FDA-Public Use
  Company Number: CA-JNJFOC-20140911196

PATIENT
  Age: 64 Year
  Sex: Female

DRUGS (2)
  1. SIMPONI [Suspect]
     Active Substance: GOLIMUMAB
     Indication: PSORIATIC ARTHROPATHY
     Route: 058
     Dates: start: 20131128
  2. SIMPONI [Suspect]
     Active Substance: GOLIMUMAB
     Indication: PSORIATIC ARTHROPATHY
     Route: 058
     Dates: start: 20130128

REACTIONS (6)
  - Dermal cyst [Unknown]
  - Limb injury [Unknown]
  - Back pain [Unknown]
  - Contusion [Unknown]
  - Basal cell carcinoma [Unknown]
  - Pain in extremity [Unknown]

NARRATIVE: CASE EVENT DATE: 20130822
